FAERS Safety Report 5150166-3 (Version None)
Quarter: 2006Q4

REPORT INFORMATION
  Report Type: 
  Country: None (occurrence: None)
  Receive Date: 20061114
  Receipt Date: 20061106
  Transmission Date: 20070319
  Serious: Yes (Other)
  Sender: FDA-Public Use
  Company Number: DE-JNJFOC-20061101625

PATIENT
  Age: 40 Year
  Sex: Male

DRUGS (16)
  1. HALDOL [Suspect]
     Route: 048
  2. HALDOL [Suspect]
     Route: 048
  3. HALDOL [Suspect]
     Route: 048
  4. HALDOL [Suspect]
     Route: 048
  5. HALDOL [Suspect]
     Indication: SCHIZOPHRENIA
     Route: 048
  6. RISPERDAL [Interacting]
     Route: 048
  7. RISPERDAL [Interacting]
     Route: 048
  8. RISPERDAL [Interacting]
     Route: 048
  9. RISPERDAL [Interacting]
     Route: 048
  10. RISPERDAL [Interacting]
     Indication: SCHIZOPHRENIA
     Route: 048
  11. RISPERDAL CONSTA [Interacting]
     Indication: SCHIZOPHRENIA
     Route: 030
  12. TAXILAN [Interacting]
     Route: 048
  13. TAXILAN [Interacting]
     Route: 048
  14. TAXILAN [Interacting]
     Route: 048
  15. TAXILAN [Interacting]
     Route: 048
  16. TAXILAN [Interacting]
     Indication: SCHIZOPHRENIA
     Route: 048

REACTIONS (2)
  - DRUG INTERACTION [None]
  - PARKINSONISM [None]
